FAERS Safety Report 9300219 (Version 1)
Quarter: 2013Q2

REPORT INFORMATION
  Report Type: Spontaneous
  Country: DK (occurrence: DK)
  Receive Date: 20130521
  Receipt Date: 20130521
  Transmission Date: 20140414
  Serious: Yes (Other)
  Sender: FDA-Public Use
  Company Number: PHHY2013DK048683

PATIENT
  Age: 63 Year
  Sex: Female

DRUGS (2)
  1. ALENDRONATE SANDOZ [Suspect]
     Indication: OSTEOPOROSIS
     Dosage: 70 MG, QW
     Route: 048
     Dates: start: 200801, end: 201210
  2. ACLASTA [Suspect]
     Indication: OSTEOPOROSIS
     Route: 042
     Dates: start: 201210

REACTIONS (1)
  - Osteonecrosis of jaw [Not Recovered/Not Resolved]
